FAERS Safety Report 7540084-5 (Version None)
Quarter: 2011Q2

REPORT INFORMATION
  Report Type: 
  Country: None (occurrence: None)
  Receive Date: 20110610
  Receipt Date: 20110608
  Transmission Date: 20111010
  Serious: Yes (Hospitalization, Other)
  Sender: FDA-Public Use
  Company Number: CA-ABBOTT-11P-028-0729657-00

PATIENT
  Sex: Male
  Weight: 74.91 kg

DRUGS (26)
  1. CRESTOR [Concomitant]
     Indication: BLOOD CHOLESTEROL INCREASED
     Route: 048
     Dates: start: 20100101
  2. NOVO-RISEDRONATE [Concomitant]
     Indication: SARCOIDOSIS
     Route: 048
     Dates: start: 20060101
  3. CYANOCOBALAMIN [Concomitant]
     Indication: CROHN'S DISEASE
     Route: 058
     Dates: start: 20060101
  4. CALCIUM CARBONATE [Concomitant]
     Indication: ROUTINE HEALTH MAINTENANCE
     Route: 048
     Dates: start: 20060101
  5. APO-AMITRIPTYLINE [Concomitant]
     Indication: HEAD INJURY
     Route: 048
     Dates: start: 20060101
  6. APO-AZATHIOPRINE [Concomitant]
     Indication: CROHN'S DISEASE
     Route: 048
     Dates: start: 20101118
  7. HYDROCORTISONE [Concomitant]
     Indication: CROHN'S DISEASE
     Route: 061
  8. MAGNESIUM SULFATE [Concomitant]
     Indication: ROUTINE HEALTH MAINTENANCE
     Route: 048
     Dates: start: 20060101
  9. AVAPRO [Concomitant]
     Indication: HYPERTENSION
     Route: 048
     Dates: start: 20100101
  10. PMS-CHOLESTYRAMINE [Concomitant]
     Indication: DIARRHOEA
     Route: 048
     Dates: start: 19910101
  11. NOVO-AMLODIPINE [Concomitant]
     Indication: HYPERTENSION
     Route: 048
     Dates: start: 20100101
  12. GEN-CARBAMAZEPINE [Concomitant]
     Indication: HEAD INJURY
     Dosage: CR 400 THREE TIMES DAILY
     Route: 048
     Dates: start: 19920101
  13. PULMICORT [Concomitant]
     Indication: SARCOIDOSIS
     Dosage: 0.25 MG/MLAST TWICE DAILY
     Route: 055
     Dates: start: 20060101
  14. HUMIRA [Suspect]
     Route: 058
     Dates: start: 20110407, end: 20110512
  15. HUMIRA [Suspect]
     Route: 058
     Dates: start: 20110512
  16. IMURAN [Suspect]
     Indication: CROHN'S DISEASE
     Dates: start: 20101128
  17. PENTASA [Concomitant]
     Indication: CROHN'S DISEASE
     Dosage: WITH MEALS
     Route: 048
     Dates: start: 20100101
  18. TYLENOL W/ CODEINE NO. 3 [Concomitant]
     Indication: PAIN
     Route: 048
     Dates: start: 19910101
  19. BOTOX [Concomitant]
     Indication: HEAD INJURY
     Route: 058
     Dates: start: 20100101
  20. CYCLOBENZAPRINE [Concomitant]
     Indication: INTERVERTEBRAL DISC DEGENERATION
     Dosage: 10MG THREE TIMES DAILY, AS NEEDED
     Route: 048
     Dates: start: 20060101
  21. HUMIRA [Suspect]
     Indication: CROHN'S DISEASE
     Route: 058
     Dates: start: 20101128, end: 20110407
  22. CENTRUM SELECT 50+ [Concomitant]
     Indication: VITAMIN SUPPLEMENTATION
     Route: 048
     Dates: start: 20060101
  23. PROCTOFOAM HC [Concomitant]
     Indication: FREQUENT BOWEL MOVEMENTS
     Route: 048
     Dates: start: 20110414
  24. ANUSOL PLUS [Concomitant]
     Indication: CROHN'S DISEASE
     Route: 061
  25. LIPIDIL [Concomitant]
     Indication: BLOOD CHOLESTEROL INCREASED
     Route: 048
     Dates: start: 20090101
  26. VITAMIN E [Concomitant]
     Indication: VITAMIN SUPPLEMENTATION
     Route: 048
     Dates: start: 20060101

REACTIONS (11)
  - ABDOMINAL ADHESIONS [None]
  - HYPOPHAGIA [None]
  - GASTROINTESTINAL PAIN [None]
  - ADHESION [None]
  - CONSTIPATION [None]
  - VOMITING [None]
  - DRUG INEFFECTIVE [None]
  - INTESTINAL OBSTRUCTION [None]
  - WEIGHT DECREASED [None]
  - NAUSEA [None]
  - PAIN [None]
